FAERS Safety Report 14779190 (Version 9)
Quarter: 2018Q3

REPORT INFORMATION
  Report Type: Report from Study
  Country: None (occurrence: FR)
  Receive Date: 20180419
  Receipt Date: 20180910
  Transmission Date: 20181010
  Serious: Yes (Hospitalization)
  Sender: FDA-Public Use
  Company Number: FR-ABBVIE-18K-056-2328475-00

PATIENT
  Age: 74 Year
  Sex: Male

DRUGS (3)
  1. DUODOPA [Suspect]
     Active Substance: CARBIDOPA\LEVODOPA
     Indication: PARKINSON^S DISEASE
     Dosage: MD:10 ML;CFR (DAY):4.8 ML/H FROM 7AM?2PM AND 6 ML/H FROM 2PM?9PM?ED: 3 ML
     Route: 050
     Dates: start: 20180327, end: 201806
  2. NEUPRO [Concomitant]
     Active Substance: ROTIGOTINE
     Indication: PRODUCT USED FOR UNKNOWN INDICATION
     Route: 065
     Dates: start: 201808
  3. DUODOPA [Suspect]
     Active Substance: CARBIDOPA\LEVODOPA
     Dosage: MD10ML;CFR(DAY) 5.2ML/ H FROM 6:00AM?12:00AM; CFR(NIGHT) FROM 12:00AM?10:00PM ?ED3ML
     Route: 050
     Dates: start: 20180618

REACTIONS (7)
  - Off label use [Unknown]
  - Inguinal hernia [Unknown]
  - Hyperthermia [Not Recovered/Not Resolved]
  - Freezing phenomenon [Unknown]
  - Device occlusion [Unknown]
  - Limb discomfort [Not Recovered/Not Resolved]
  - Intervertebral disc displacement [Unknown]

NARRATIVE: CASE EVENT DATE: 2018
